FAERS Safety Report 6755434-7 (Version None)
Quarter: 2010Q2

REPORT INFORMATION
  Report Type: 
  Country: None (occurrence: None)
  Receive Date: 20100604
  Receipt Date: 20100526
  Transmission Date: 20101027
  Serious: Yes (Other)
  Sender: FDA-Public Use
  Company Number: CA-JNJFOC-20100510532

PATIENT
  Sex: Female
  Weight: 54 kg

DRUGS (18)
  1. REMICADE [Suspect]
     Indication: CROHN'S DISEASE
     Route: 042
  2. REMICADE [Suspect]
     Route: 042
  3. HYDROCHLOROTHIAZIDE [Concomitant]
  4. RABEPRAZOLE SODIUM [Concomitant]
  5. MAGNESIUM [Concomitant]
     Route: 048
  6. VITAMIN D [Concomitant]
     Route: 048
  7. LIPITOR [Concomitant]
  8. CALCIUM CARBONATE [Concomitant]
     Route: 048
  9. SLOW-K [Concomitant]
     Route: 048
  10. METFORMIN [Concomitant]
     Route: 048
  11. ZANTAC [Concomitant]
     Route: 048
  12. LYRICA [Concomitant]
     Route: 048
  13. WARFARIN SODIUM [Concomitant]
     Route: 048
  14. NORVASC [Concomitant]
     Route: 048
  15. BRICANYL [Concomitant]
     Route: 055
  16. BENADRYL [Concomitant]
     Indication: PREMEDICATION
     Route: 042
  17. TYLENOL [Concomitant]
     Indication: PREMEDICATION
     Route: 048
  18. SOLU-CORTEF [Concomitant]
     Indication: PREMEDICATION
     Route: 042

REACTIONS (6)
  - DYSPHONIA [None]
  - ERYTHEMA [None]
  - INFUSION RELATED REACTION [None]
  - PRURITUS [None]
  - SENSORY DISTURBANCE [None]
  - URTICARIA [None]
